FAERS Safety Report 9699210 (Version 2)
Quarter: 2013Q4

REPORT INFORMATION
  Report Type: Spontaneous
  Country: US (occurrence: US)
  Receive Date: 20131120
  Receipt Date: 20131120
  Transmission Date: 20140711
  Serious: Yes (Disabling)
  Sender: FDA-Public Use
  Company Number: US-GILEAD-2008-0015024

PATIENT
  Age: 59 Year
  Sex: Male
  Weight: 58.97 kg

DRUGS (8)
  1. LETAIRIS [Suspect]
     Indication: PULMONARY ARTERIAL HYPERTENSION
     Route: 048
     Dates: start: 20071121, end: 20080117
  2. REVATIO [Concomitant]
     Indication: PULMONARY ARTERIAL HYPERTENSION
     Route: 048
  3. PROTONIX [Concomitant]
     Indication: GASTROOESOPHAGEAL REFLUX DISEASE
     Route: 048
  4. LISINOPRIL [Concomitant]
     Indication: ESSENTIAL HYPERTENSION
     Route: 048
  5. DONNATAL [Concomitant]
     Indication: IRRITABLE BOWEL SYNDROME
     Route: 048
  6. PROCARDIA XL [Concomitant]
     Indication: ESSENTIAL HYPERTENSION
     Route: 048
  7. CUPRIMINE [Concomitant]
     Indication: SUPPLEMENTATION THERAPY
     Route: 048
  8. TETRACYCLINE [Concomitant]
     Indication: DUODENAL ULCER
     Route: 048

REACTIONS (1)
  - Dyspnoea [Recovered/Resolved]
